FAERS Safety Report 9372990 (Version 3)
Quarter: 2013Q3

REPORT INFORMATION
  Report Type: Spontaneous
  Country: GB (occurrence: None)
  Receive Date: 20130624
  Receipt Date: 20130718
  Transmission Date: 20140515
  Serious: Yes (Hospitalization)
  Sender: FDA-Public Use
  Company Number: SYM-2013-05022

PATIENT
  Age: 71 Year
  Sex: Male

DRUGS (11)
  1. 5-FU [Suspect]
     Indication: COLORECTAL CANCER METASTATIC
     Route: 040
     Dates: start: 20130304, end: 20130304
  2. AFLIBERCEPT [Suspect]
     Indication: COLORECTAL CANCER METASTATIC
     Route: 042
     Dates: start: 20130304, end: 20130304
  3. IRINOTECAN [Suspect]
     Indication: COLORECTAL CANCER METASTATIC
     Route: 042
     Dates: start: 20130304, end: 20130304
  4. LEUCOVORIN [Suspect]
     Indication: COLORECTAL CANCER METASTATIC
     Route: 042
     Dates: start: 20130304, end: 20130304
  5. CALCIUM CHANNEL BLOCKERS (CALCIUM CHANNEL BLOCKERS) [Concomitant]
  6. CORTICOSTEROIDS (CORTICOSTEROIDS) [Concomitant]
  7. SEROTONIN ANTAGONISTS (SEROTONIN ANTAGONISTS) [Concomitant]
  8. LANSOPRAZOLE (LANSOPRAZOLE) (LANSOPRAZOLE) [Concomitant]
  9. HEPARIN GROUP (HEPARIN GROUP) [Concomitant]
  10. ANTIBIOTICS (ANTIBIOTICS) [Concomitant]
  11. ANALGESICS (ANALGESICS) [Concomitant]

REACTIONS (1)
  - Diarrhoea [None]
